FAERS Safety Report 17778950 (Version 2)
Quarter: 2020Q3

REPORT INFORMATION
  Report Type: Report from Study
  Country: DE (occurrence: DE)
  Receive Date: 20200513
  Receipt Date: 20200814
  Transmission Date: 20201102
  Serious: Yes (Hospitalization)
  Sender: FDA-Public Use
  Company Number: DE-MYLANLABS-2020M1046119

PATIENT
  Age: 73 Year
  Sex: Male

DRUGS (4)
  1. METHOTREXATE. [Suspect]
     Active Substance: METHOTREXATE
     Dosage: START DATE BETWEEN 06 SEP 2018 TO 07JAN 2019 END DATE BETWEEN 07 JAN 2019 TO 20 JAN 2020
     Route: 065
  2. METHOTREXATE. [Suspect]
     Active Substance: METHOTREXATE
     Dosage: START DATE BEFORE 09 MAY 2018 END DATE BETWEEN 06 SEP 2018 TO 07JAN 2019
     Route: 065
  3. HUMIRA [Suspect]
     Active Substance: ADALIMUMAB
     Indication: RHEUMATOID ARTHRITIS
     Dosage: 40 MILLIGRAM, Q2W
     Route: 058
     Dates: start: 201805
  4. METHOTREXATE. [Suspect]
     Active Substance: METHOTREXATE
     Indication: PRODUCT USED FOR UNKNOWN INDICATION
     Dosage: START DATE BETWEEN 07 JAN 2019 TO 20 JAN 2020
     Route: 065

REACTIONS (1)
  - Spinal subarachnoid haemorrhage [Recovered/Resolved]

NARRATIVE: CASE EVENT DATE: 20190306
